FAERS Safety Report 21015165 (Version 1)
Quarter: 2022Q2

REPORT INFORMATION
  Report Type: Spontaneous
  Country: US (occurrence: US)
  Receive Date: 20220628
  Receipt Date: 20220628
  Transmission Date: 20220721
  Serious: Yes (Hospitalization, Other)
  Sender: FDA-Public Use
  Company Number: US-LUPIN PHARMACEUTICALS INC.-2022-08915

PATIENT
  Age: 2 Year
  Sex: Female

DRUGS (5)
  1. DECITABINE [Suspect]
     Active Substance: DECITABINE
     Indication: Myeloid leukaemia
     Dosage: UNK
     Route: 065
  2. CYTARABINE [Suspect]
     Active Substance: CYTARABINE
     Indication: Myeloid leukaemia
     Dosage: UNK (INDUCTION I; FURTHER RECEIVED THREE SUBSEQUENT CYCLES OF CHEMOTHERAPY)
     Route: 065
  3. DAUNORUBICIN [Suspect]
     Active Substance: DAUNORUBICIN
     Indication: Myeloid leukaemia
     Dosage: UNK (INDUCTION I; FURTHER RECEIVED THREE SUBSEQUENT CYCLES OF CHEMOTHERAPY)
     Route: 065
  4. ETOPOSIDE [Suspect]
     Active Substance: ETOPOSIDE
     Indication: Myeloid leukaemia
     Dosage: UNK (INDUCTION I; FURTHER RECEIVED THREE SUBSEQUENT CYCLES OF CHEMOTHERAPY)
     Route: 065
  5. VORINOSTAT [Suspect]
     Active Substance: VORINOSTAT
     Indication: Myeloid leukaemia
     Dosage: UNK
     Route: 065

REACTIONS (3)
  - Vascular device infection [Unknown]
  - Drug effective for unapproved indication [Unknown]
  - Off label use [Unknown]
